FAERS Safety Report 8400160 (Version 4)
Quarter: 2012Q4

REPORT INFORMATION
  Report Type: Report from Study
  Country: US (occurrence: US)
  Receive Date: 20120210
  Receipt Date: 20121210
  Transmission Date: 20130627
  Serious: Yes (Hospitalization, Other)
  Sender: FDA-Public Use
  Company Number: US-ROCHE-1013809

PATIENT
  Age: 54 Year
  Sex: Female
  Weight: 95.79 kg

DRUGS (15)
  1. OCRELIZUMAB [Suspect]
     Indication: RHEUMATOID ARTHRITIS
     Dosage: Date of last dose prior to SAE 16/Mar/2009
     Route: 042
     Dates: start: 20080912
  2. TRASTUZUMAB [Suspect]
     Indication: BREAST CANCER
     Route: 065
     Dates: start: 20111125
  3. DOCETAXEL [Suspect]
     Indication: BREAST CANCER
     Route: 065
     Dates: start: 20111125
  4. CARBOPLATIN [Suspect]
     Indication: BREAST CANCER
     Route: 065
     Dates: start: 20111125
  5. TRAMADOL HCL [Concomitant]
     Route: 065
     Dates: start: 20040526
  6. PRILOSEC OTC [Concomitant]
     Route: 065
     Dates: start: 20090816
  7. PREDNISONE [Concomitant]
     Route: 065
     Dates: start: 20050912
  8. AMITRIPTYLINE [Concomitant]
     Route: 065
     Dates: start: 20040526
  9. AMITRIPTYLINE [Concomitant]
     Route: 065
  10. AMITRIPTYLINE [Concomitant]
     Route: 065
     Dates: start: 20111206
  11. ATENOLOL [Concomitant]
     Route: 065
     Dates: start: 20020522
  12. FOLIC ACID [Concomitant]
     Route: 065
     Dates: start: 20010309
  13. METHOTREXATE [Concomitant]
     Route: 065
     Dates: start: 20080725
  14. FUROSEMIDE [Concomitant]
     Route: 065
     Dates: start: 20080730
  15. IRON SULFATE [Concomitant]
     Route: 065
     Dates: start: 20101205

REACTIONS (9)
  - Renal failure acute [Recovered/Resolved]
  - Cellulitis [Recovering/Resolving]
  - Dehydration [None]
  - Haemoglobin decreased [None]
  - Haematocrit decreased [None]
  - Urine ketone body present [None]
  - Lipoma [None]
  - Abdominal pain [None]
  - Neutropenia [None]
